FAERS Safety Report 9288316 (Version 1)
Quarter: 2013Q2

REPORT INFORMATION
  Report Type: Spontaneous
  Country: US (occurrence: US)
  Receive Date: 20130514
  Receipt Date: 20130514
  Transmission Date: 20140414
  Serious: Yes (Death)
  Sender: FDA-Public Use
  Company Number: US-PFIZER INC-2013145138

PATIENT
  Age: 73 Year
  Sex: Male

DRUGS (1)
  1. RAPAMUNE [Suspect]
     Indication: RENAL DISORDER
     Dosage: 1 MG, ALTERNATE DAY
     Dates: start: 20110302

REACTIONS (2)
  - Cerebrovascular accident [Fatal]
  - Intestinal perforation [Fatal]
